FAERS Safety Report 8260685-9 (Version None)
Quarter: 2012Q2

REPORT INFORMATION
  Report Type: 
  Country: None (occurrence: None)
  Receive Date: 20120405
  Receipt Date: 20120326
  Transmission Date: 20120825
  Serious: Yes (Hospitalization, Disabling, Other)
  Sender: FDA-Public Use
  Company Number: NL-BIOGENIDEC-2012BI005290

PATIENT
  Age: 45 Year
  Sex: Female

DRUGS (1)
  1. TYSABRI [Suspect]
     Indication: RELAPSING-REMITTING MULTIPLE SCLEROSIS
     Route: 042
     Dates: start: 20080521, end: 20120102

REACTIONS (6)
  - RETINAL INJURY [None]
  - HERPES SIMPLEX OPHTHALMIC [None]
  - HERPES ZOSTER [None]
  - UVEITIS [None]
  - VISUAL ACUITY REDUCED [None]
  - HYPOACUSIS [None]
